FAERS Safety Report 8329060-2 (Version None)
Quarter: 2012Q2

REPORT INFORMATION
  Report Type: 
  Country: None (occurrence: None)
  Receive Date: 20120430
  Receipt Date: 20120413
  Transmission Date: 20120825
  Serious: Yes (Other)
  Sender: FDA-Public Use
  Company Number: 2012MA004884

PATIENT
  Age: 75 Year
  Sex: Male

DRUGS (3)
  1. DILANTIN [Concomitant]
  2. PHENYTOIN [Suspect]
     Indication: CONVULSION
     Dosage: QD
  3. PHENYTOIN [Suspect]
     Indication: CONFUSIONAL STATE
     Dosage: QD

REACTIONS (4)
  - PRODUCT SUBSTITUTION ISSUE [None]
  - CONVULSION [None]
  - IMPAIRED DRIVING ABILITY [None]
  - STRESS [None]
